FAERS Safety Report 25402500 (Version 1)
Quarter: 2025Q2

REPORT INFORMATION
  Report Type: Other
  Country: NL (occurrence: NL)
  Receive Date: 20250605
  Receipt Date: 20250605
  Transmission Date: 20250716
  Serious: Yes (Life-Threatening, Other)
  Sender: GLENMARK
  Company Number: None

PATIENT
  Age: 61 Year
  Sex: Female

DRUGS (5)
  1. DESLORATADINE [Suspect]
     Active Substance: DESLORATADINE
     Indication: Seasonal allergy
     Route: 065
     Dates: start: 2020
  2. DESLORATADINE [Suspect]
     Active Substance: DESLORATADINE
     Indication: Seasonal allergy
     Dosage: 5 MILLIGRAM, QD (1X PER DAG )
     Route: 048
     Dates: start: 20250403, end: 20250518
  3. DESLORATADINE [Suspect]
     Active Substance: DESLORATADINE
     Indication: Mite allergy
  4. DESLORATADINE [Suspect]
     Active Substance: DESLORATADINE
     Indication: Rash
  5. DESLORATADINE [Suspect]
     Active Substance: DESLORATADINE

REACTIONS (9)
  - Arrhythmia [Recovered/Resolved]
  - Swollen tongue [Recovered/Resolved]
  - Pharyngeal swelling [Recovered/Resolved]
  - Lip swelling [Recovered/Resolved]
  - Wheezing [Recovered/Resolved]
  - Urticaria [Recovered/Resolved]
  - Dyspnoea [Recovered/Resolved]
  - Heart rate decreased [Unknown]
  - Product substitution issue [Unknown]
